FAERS Safety Report 18567756 (Version 1)
Quarter: 2020Q4

REPORT INFORMATION
  Report Type: Report from Study
  Country: CN (occurrence: CN)
  Receive Date: 20201202
  Receipt Date: 20201202
  Transmission Date: 20210114
  Serious: Yes (Other)
  Sender: FDA-Public Use
  Company Number: CN-JNJFOC-20201149025

PATIENT

DRUGS (1)
  1. REMICADE [Suspect]
     Active Substance: INFLIXIMAB
     Indication: CROHN^S DISEASE
     Route: 042

REACTIONS (8)
  - Infusion related reaction [Unknown]
  - Drug specific antibody [Unknown]
  - Seizure [Unknown]
  - Adverse event [Unknown]
  - Therapeutic response decreased [Unknown]
  - Infection [Unknown]
  - Sepsis [Unknown]
  - Drug level below therapeutic [Unknown]
